FAERS Safety Report 7955371-6 (Version None)
Quarter: 2011Q4

REPORT INFORMATION
  Report Type: 
  Country: None (occurrence: None)
  Receive Date: 20111202
  Receipt Date: 20111125
  Transmission Date: 20120403
  Serious: Yes (Other)
  Sender: FDA-Public Use
  Company Number: MX-UCBSA-046435

PATIENT
  Age: 53 Year
  Sex: Female
  Weight: 90 kg

DRUGS (2)
  1. NO CONCOMITANT MEDICATION [Concomitant]
  2. NUBRENZA [Suspect]
     Indication: PARKINSON'S DISEASE
     Route: 048
     Dates: start: 20111114, end: 20111115

REACTIONS (3)
  - TACHYCARDIA [None]
  - HYPERTENSIVE CRISIS [None]
  - OFF LABEL USE [None]
